FAERS Safety Report 8481634-4 (Version None)
Quarter: 2012Q3

REPORT INFORMATION
  Report Type: 
  Country: None (occurrence: None)
  Receive Date: 20120702
  Receipt Date: 20120620
  Transmission Date: 20120928
  Serious: No
  Sender: FDA-Public Use
  Company Number: US-ASTRAZENECA-2012SE28514

PATIENT
  Age: 70 Year
  Sex: Female
  Weight: 92.1 kg

DRUGS (1)
  1. ARIMIDEX [Suspect]
     Route: 048

REACTIONS (5)
  - FEELING HOT [None]
  - DRUG DOSE OMISSION [None]
  - TREMOR [None]
  - OFF LABEL USE [None]
  - HYPERHIDROSIS [None]
